FAERS Safety Report 6297205-4 (Version None)
Quarter: 2009Q3

REPORT INFORMATION
  Report Type: 
  Country: None (occurrence: None)
  Receive Date: 20090804
  Receipt Date: 20090804
  Transmission Date: 20100115
  Serious: No
  Sender: FDA-Public Use
  Company Number: None

PATIENT
  Sex: Male
  Weight: 102.0593 kg

DRUGS (1)
  1. LEVAQUIN [Suspect]
     Indication: PULMONARY CONGESTION
     Dosage: 750 MG TABLET, 1 TAB-5 DAYS
     Dates: start: 20090122, end: 20090126

REACTIONS (2)
  - OEDEMA PERIPHERAL [None]
  - TENDON DISORDER [None]
